FAERS Safety Report 23202981 (Version 1)
Quarter: 2023Q4

REPORT INFORMATION
  Report Type: Spontaneous
  Country: US (occurrence: US)
  Receive Date: 20231120
  Receipt Date: 20231120
  Transmission Date: 20240109
  Serious: Yes (Hospitalization)
  Sender: FDA-Public Use
  Company Number: US-002147023-NVSC2023US243708

PATIENT
  Sex: Female

DRUGS (2)
  1. TAFINLAR [Suspect]
     Active Substance: DABRAFENIB MESYLATE
     Indication: Bile duct cancer
     Dosage: 50 MG, BID
     Route: 048
     Dates: start: 202310
  2. MEKINIST [Suspect]
     Active Substance: TRAMETINIB DIMETHYL SULFOXIDE
     Indication: Bile duct cancer
     Dosage: 2 MG, QD
     Route: 048
     Dates: start: 202310

REACTIONS (3)
  - Blood potassium decreased [Unknown]
  - Blood chloride decreased [Unknown]
  - Product use in unapproved indication [Unknown]
